FAERS Safety Report 18372165 (Version 2)
Quarter: 2020Q4

REPORT INFORMATION
  Report Type: Spontaneous
  Country: US (occurrence: US)
  Receive Date: 20201012
  Receipt Date: 20201202
  Transmission Date: 20210114
  Serious: No
  Sender: FDA-Public Use
  Company Number: US-JNJFOC-20201012951

PATIENT
  Age: 64 Year
  Sex: Female

DRUGS (2)
  1. BALVERSA [Suspect]
     Active Substance: ERDAFITINIB
     Indication: PRODUCT USED FOR UNKNOWN INDICATION
     Dosage: 2-4 MG  TABLET DAILY
     Route: 048
     Dates: start: 20200602, end: 20200708
  2. SIMVASTATIN. [Concomitant]
     Active Substance: SIMVASTATIN
     Indication: BLOOD CHOLESTEROL INCREASED
     Route: 065

REACTIONS (8)
  - Alopecia [Recovered/Resolved]
  - Nail bed inflammation [Recovered/Resolved]
  - Blood blister [Recovered/Resolved]
  - Ageusia [Recovered/Resolved]
  - Paranasal sinus haemorrhage [Recovered/Resolved]
  - Dry mouth [Recovered/Resolved]
  - Hyperaesthesia [Recovered/Resolved]
  - Blister [Recovered/Resolved]

NARRATIVE: CASE EVENT DATE: 20200602
